FAERS Safety Report 4864156-9 (Version None)
Quarter: 2005Q4

REPORT INFORMATION
  Report Type: 
  Country: None (occurrence: None)
  Receive Date: 20051219
  Receipt Date: 20051206
  Transmission Date: 20060501
  Serious: Yes (Hospitalization)
  Sender: FDA-Public Use
  Company Number: 2005165985

PATIENT
  Age: 35 Year
  Sex: Male

DRUGS (1)
  1. ZYVOX [Suspect]
     Indication: ILL-DEFINED DISORDER
     Dates: end: 20050101

REACTIONS (3)
  - DUODENAL ULCER [None]
  - ENTEROCOCCAL INFECTION [None]
  - SPINAL OPERATION [None]
